FAERS Safety Report 12014977 (Version 1)
Quarter: 2016Q1

REPORT INFORMATION
  Report Type: Spontaneous
  Country: US (occurrence: US)
  Receive Date: 20160205
  Receipt Date: 20160205
  Transmission Date: 20160526
  Serious: No
  Sender: FDA-Public Use
  Company Number: US-JNJFOC-20160107638

PATIENT
  Age: 82 Year
  Sex: Female
  Weight: 68.04 kg

DRUGS (2)
  1. PARAFON FORTE [Suspect]
     Active Substance: CHLORZOXAZONE
     Indication: MUSCLE SPASMS
     Route: 048
  2. PARAFON FORTE [Suspect]
     Active Substance: CHLORZOXAZONE
     Indication: MUSCLE TIGHTNESS
     Route: 048

REACTIONS (2)
  - Drug dose omission [Unknown]
  - Adverse event [Unknown]
